FAERS Safety Report 10209187 (Version 3)
Quarter: 2014Q3

REPORT INFORMATION
  Report Type: Report from Study
  Country: US (occurrence: US)
  Receive Date: 20140530
  Receipt Date: 20140731
  Transmission Date: 20150326
  Serious: Yes (Hospitalization, Other)
  Sender: FDA-Public Use
  Company Number: US-ABBVIE-14P-163-1234495-00

PATIENT
  Age: 30 Year
  Sex: Female
  Weight: 39.9 kg

DRUGS (4)
  1. HUMIRA [Suspect]
     Active Substance: ADALIMUMAB
     Indication: CROHN^S DISEASE
     Dosage: 4-5 INJECTIONS
  2. HUMIRA [Suspect]
     Active Substance: ADALIMUMAB
     Indication: COLITIS ULCERATIVE
     Dates: start: 20140402, end: 20140402
  3. HUMIRA [Suspect]
     Active Substance: ADALIMUMAB
     Dates: end: 20140510
  4. HUMIRA [Suspect]
     Active Substance: ADALIMUMAB
     Dates: start: 20140521

REACTIONS (11)
  - Dysmenorrhoea [Unknown]
  - Menorrhagia [Unknown]
  - Abdominal pain [Unknown]
  - Vaginal cellulitis [Recovered/Resolved with Sequelae]
  - Vulvovaginal pain [Unknown]
  - Crohn^s disease [Recovering/Resolving]
  - Anxiety [Unknown]
  - Crohn^s disease [Not Recovered/Not Resolved]
  - Pneumonia [Recovered/Resolved]
  - Pyrexia [Unknown]
  - Squamous cell carcinoma of the vulva [Recovered/Resolved]

NARRATIVE: CASE EVENT DATE: 2008
